FAERS Safety Report 18093482 (Version 1)
Quarter: 2020Q3

REPORT INFORMATION
  Report Type: Spontaneous
  Country: US (occurrence: US)
  Receive Date: 20200730
  Receipt Date: 20200730
  Transmission Date: 20201103
  Serious: Yes (Hospitalization, Other)
  Sender: FDA-Public Use
  Company Number: US-PFIZER INC-2020287993

PATIENT
  Age: 24 Year
  Sex: Male
  Weight: 72.57 kg

DRUGS (1)
  1. XELJANZ [Suspect]
     Active Substance: TOFACITINIB CITRATE
     Indication: COLITIS ULCERATIVE
     Dosage: 10 MG
     Route: 048
     Dates: start: 202006

REACTIONS (3)
  - Appendicitis [Recovered/Resolved with Sequelae]
  - Nephrolithiasis [Unknown]
  - Pain [Unknown]

NARRATIVE: CASE EVENT DATE: 20200725
